FAERS Safety Report 14264864 (Version 5)
Quarter: 2018Q2

REPORT INFORMATION
  Report Type: Spontaneous
  Country: DE (occurrence: DE)
  Receive Date: 20171208
  Receipt Date: 20180606
  Transmission Date: 20180711
  Serious: Yes (Hospitalization)
  Sender: FDA-Public Use
  Company Number: PHHY2017DE171672

PATIENT
  Age: 58 Year
  Sex: Male
  Weight: 69 kg

DRUGS (6)
  1. SILYMARIN [Interacting]
     Active Substance: DIETARY SUPPLEMENT\HERBALS\MILK THISTLE
     Indication: PROPHYLAXIS
     Dosage: 3332 MG, TID (4 TABLETS)
     Route: 048
     Dates: start: 20171003, end: 20171020
  2. METOPROLOL. [Concomitant]
     Active Substance: METOPROLOL
     Indication: PRODUCT USED FOR UNKNOWN INDICATION
     Dosage: 47.5 MG, QD
     Route: 065
     Dates: start: 201710, end: 201710
  3. HAWTHORN [Suspect]
     Active Substance: CRATAEGUS LAEVIGATA FRUIT
     Indication: PRODUCT USED FOR UNKNOWN INDICATION
     Route: 065
  4. METOPROLOL. [Concomitant]
     Active Substance: METOPROLOL
     Dosage: 47.5 MG, QD
     Route: 065
     Dates: start: 201710
  5. SYREA [Concomitant]
     Active Substance: HYDROXYUREA
     Indication: PRODUCT USED FOR UNKNOWN INDICATION
     Dosage: 500 MG, TID
     Route: 065
     Dates: start: 20170929
  6. GLIVEC [Suspect]
     Active Substance: IMATINIB MESYLATE
     Indication: CHRONIC MYELOID LEUKAEMIA
     Dosage: 400 MG, QD
     Route: 048
     Dates: start: 20170930

REACTIONS (19)
  - Discomfort [Recovered/Resolved]
  - Renal cyst [Unknown]
  - Supraventricular tachycardia [Unknown]
  - C-reactive protein increased [Recovered/Resolved]
  - Splenomegaly [Unknown]
  - Leukocytosis [Unknown]
  - Atelectasis [Unknown]
  - Anaemia [Unknown]
  - Body temperature increased [Unknown]
  - Pancytopenia [Unknown]
  - Rectal haemorrhage [Unknown]
  - Pyrexia [Recovered/Resolved]
  - Haemorrhoids [Unknown]
  - Malaise [Recovered/Resolved]
  - Pyrexia [Recovered/Resolved]
  - Mitral valve incompetence [Unknown]
  - General physical condition abnormal [Unknown]
  - Drug interaction [Recovered/Resolved]
  - Splenic infarction [Unknown]

NARRATIVE: CASE EVENT DATE: 201710
